FAERS Safety Report 4964303-4 (Version None)
Quarter: 2006Q2

REPORT INFORMATION
  Report Type: 
  Country: None (occurrence: None)
  Receive Date: 20060406
  Receipt Date: 20060330
  Transmission Date: 20061013
  Serious: Yes (Hospitalization)
  Sender: FDA-Public Use
  Company Number: US-BRISTOL-MYERS SQUIBB COMPANY-13334529

PATIENT
  Sex: Male

DRUGS (2)
  1. ERBITUX [Suspect]
     Indication: NEOPLASM MALIGNANT
     Dates: start: 20060330, end: 20060330
  2. BENADRYL [Concomitant]
     Indication: PREMEDICATION
     Dates: start: 20060330, end: 20060330

REACTIONS (2)
  - DYSPNOEA [None]
  - FLUSHING [None]
